FAERS Safety Report 17379033 (Version 1)
Quarter: 2020Q1

REPORT INFORMATION
  Report Type: Spontaneous
  Country: US (occurrence: US)
  Receive Date: 20200206
  Receipt Date: 20200206
  Transmission Date: 20200409
  Serious: No
  Sender: FDA-Public Use
  Company Number: US-ABBVIE-19K-163-2672765-00

PATIENT
  Sex: Female
  Weight: 53.57 kg

DRUGS (20)
  1. METHOTREXATE. [Interacting]
     Active Substance: METHOTREXATE
     Indication: PRODUCT USED FOR UNKNOWN INDICATION
     Route: 065
  2. OTEZLA [Suspect]
     Active Substance: APREMILAST
     Indication: PRODUCT USED FOR UNKNOWN INDICATION
     Route: 065
  3. RASUVO [Concomitant]
     Active Substance: METHOTREXATE SODIUM
     Dates: start: 2016
  4. TRINTELLIX [Concomitant]
     Active Substance: VORTIOXETINE HYDROBROMIDE
     Dates: start: 201606
  5. LYRICA [Concomitant]
     Active Substance: PREGABALIN
     Indication: FIBROMYALGIA
     Dates: start: 2016
  6. HYDROCODONE/ACETAMINOPHEN [Concomitant]
     Active Substance: ACETAMINOPHEN\HYDROCODONE
     Dosage: 10/325MG EVERY 6 HOURS AS NEEDED
     Dates: start: 2009
  7. VITAMIN D3 [Concomitant]
     Active Substance: CHOLECALCIFEROL
     Dates: start: 201606
  8. FOLIC ACID. [Interacting]
     Active Substance: FOLIC ACID
     Indication: PRODUCT USED FOR UNKNOWN INDICATION
     Route: 065
  9. FOLIC ACID. [Interacting]
     Active Substance: FOLIC ACID
     Route: 065
     Dates: start: 2016
  10. BACLOFEN. [Concomitant]
     Active Substance: BACLOFEN
     Dosage: ADDITIONAL INFORMATION:TAKES TWICE DAILY
     Dates: start: 2013
  11. HYDROCODONE/ACETAMINOPHEN [Concomitant]
     Active Substance: ACETAMINOPHEN\HYDROCODONE
     Indication: PAIN
     Dosage: 10/325MG EVERY 6 HOURS AS NEEDED
  12. HUMIRA [Suspect]
     Active Substance: ADALIMUMAB
     Indication: PRODUCT USED FOR UNKNOWN INDICATION
     Dosage: ONCE WEEKLY OR MONTHLY FREQUENCY
     Route: 058
     Dates: start: 2009
  13. OTEZLA [Suspect]
     Active Substance: APREMILAST
     Route: 065
  14. TRINTELLIX [Concomitant]
     Active Substance: VORTIOXETINE HYDROBROMIDE
     Indication: ADJUSTMENT DISORDER WITH DEPRESSED MOOD
  15. LYRICA [Concomitant]
     Active Substance: PREGABALIN
     Indication: PAIN
  16. XELJANZ [Suspect]
     Active Substance: TOFACITINIB CITRATE
     Indication: RHEUMATOID ARTHRITIS
     Dosage: BY MOUTH
     Route: 065
     Dates: start: 201701
  17. ENBREL [Suspect]
     Active Substance: ETANERCEPT
     Indication: PRODUCT USED FOR UNKNOWN INDICATION
     Route: 065
  18. RASUVO [Concomitant]
     Active Substance: METHOTREXATE SODIUM
     Indication: RHEUMATOID ARTHRITIS
     Dosage: 25MG/0.50ML
  19. BACLOFEN. [Concomitant]
     Active Substance: BACLOFEN
     Indication: MUSCLE SPASMS
     Dosage: ADDITIONAL INFORMATION:TAKES TWICE DAILY
  20. VITAMIN D3 [Concomitant]
     Active Substance: CHOLECALCIFEROL
     Indication: SUPPLEMENTATION THERAPY
     Dates: start: 2009

REACTIONS (14)
  - Drug ineffective [Unknown]
  - Skin irritation [Unknown]
  - Pain in extremity [Unknown]
  - Arthralgia [Unknown]
  - Gastritis [Unknown]
  - Anxiety [Unknown]
  - Nausea [Unknown]
  - Gastrooesophageal reflux disease [Unknown]
  - Drug interaction [Unknown]
  - Weight decreased [Unknown]
  - Stress [Unknown]
  - Nasopharyngitis [Unknown]
  - Product label issue [Unknown]
  - Burning sensation [Unknown]

NARRATIVE: CASE EVENT DATE: 2013
